FAERS Safety Report 23294343 (Version 1)
Quarter: 2023Q4

REPORT INFORMATION
  Report Type: Spontaneous
  Country: US (occurrence: US)
  Receive Date: 20231213
  Receipt Date: 20231213
  Transmission Date: 20240110
  Serious: No
  Sender: FDA-Public Use
  Company Number: US-GALDERMA-US2023016599

PATIENT

DRUGS (5)
  1. PROACTIV MD ADAPALENE ACNE TREATMENT [Suspect]
     Active Substance: ADAPALENE
     Indication: Product used for unknown indication
     Dosage: 1 DOSAGE FORM, DAILY
     Route: 061
     Dates: start: 2023, end: 2023
  2. Proactiv MD Ultra Gentle Cleanser [Concomitant]
     Indication: Product used for unknown indication
     Dosage: 1 DOSAGE FORM, DAILY
     Route: 061
     Dates: start: 2023, end: 2023
  3. Proactiv MD Ultra Hydrating Moisturizer [Concomitant]
     Indication: Product used for unknown indication
     Dosage: 1 DOSAGE FORM, DAILY
     Route: 061
     Dates: start: 2023, end: 2023
  4. COSMETICS [Concomitant]
     Active Substance: COSMETICS
     Indication: Product used for unknown indication
     Dosage: 1 DOSAGE FORM, DAILY
     Route: 061
     Dates: start: 2023, end: 2023
  5. COSMETICS [Concomitant]
     Active Substance: COSMETICS
     Indication: Product used for unknown indication
     Dosage: 1 DOSAGE FORM, DAILY
     Route: 061
     Dates: start: 2023, end: 2023

REACTIONS (1)
  - Dry skin [Unknown]

NARRATIVE: CASE EVENT DATE: 20230101
